FAERS Safety Report 5708309-6 (Version None)
Quarter: 2008Q2

REPORT INFORMATION
  Report Type: 
  Country: None (occurrence: None)
  Receive Date: 20080414
  Receipt Date: 20080331
  Transmission Date: 20081010
  Serious: Yes (Hospitalization)
  Sender: FDA-Public Use
  Company Number: 2008AL001558

PATIENT
  Age: 44 Year
  Sex: Male

DRUGS (2)
  1. GABAPENTIN [Suspect]
     Indication: BACK PAIN
     Dosage: 300 MG; QD; ORAL
     Route: 048
     Dates: start: 20080131, end: 20080304
  2. MORPHINE [Concomitant]

REACTIONS (4)
  - ALOPECIA [None]
  - ARRHYTHMIA [None]
  - HEADACHE [None]
  - SYNCOPE [None]
